FAERS Safety Report 8309140 (Version 2)
Quarter: 2015Q1

REPORT INFORMATION
  Report Type: Report from Study
  Country: DE (occurrence: DE)
  Receive Date: 20111222
  Receipt Date: 20150127
  Transmission Date: 20150721
  Serious: Yes (Death)
  Sender: FDA-Public Use
  Company Number: DE-ROCHE-1023784

PATIENT
  Age: 47 Year
  Sex: Female
  Weight: 58 kg

DRUGS (6)
  1. DOCETAXEL. [Concomitant]
     Active Substance: DOCETAXEL
     Indication: BREAST CANCER
     Route: 042
     Dates: start: 20100511
  2. BEVACIZUMAB [Suspect]
     Active Substance: BEVACIZUMAB
     Route: 042
     Dates: start: 20110419
  3. PYRIDOXIN [Concomitant]
     Active Substance: PYRIDOXINE
     Indication: PARAESTHESIA
     Route: 048
     Dates: start: 20100517, end: 20100705
  4. BEVACIZUMAB [Suspect]
     Active Substance: BEVACIZUMAB
     Indication: BREAST CANCER METASTATIC
     Route: 042
     Dates: start: 20100511
  5. THIAMIN [Concomitant]
     Active Substance: THIAMINE
     Indication: PARAESTHESIA
     Route: 048
     Dates: start: 20100517, end: 20100705
  6. PREGABALIN. [Concomitant]
     Active Substance: PREGABALIN
     Indication: PARAESTHESIA
     Route: 048
     Dates: start: 20100628, end: 20110726

REACTIONS (2)
  - Cardiac failure [Fatal]
  - Myocardial infarction [Fatal]

NARRATIVE: CASE EVENT DATE: 20111204
